FAERS Safety Report 9147608 (Version 1)
Quarter: 2013Q1

REPORT INFORMATION
  Report Type: Spontaneous
  Country: BR (occurrence: BR)
  Receive Date: 20130307
  Receipt Date: 20130307
  Transmission Date: 20140127
  Serious: Yes (Hospitalization, Other)
  Sender: FDA-Public Use
  Company Number: BR-ASTRAZENECA-2013SE13395

PATIENT
  Age: 49 Year
  Sex: Female
  Weight: 70 kg

DRUGS (5)
  1. ATACAND [Suspect]
     Indication: HYPERTENSION
     Route: 048
     Dates: end: 2012
  2. ATACAND HCT [Suspect]
     Indication: HYPERTENSION
     Dosage: 16/12.5MG 1 TABLET DAILY
     Route: 048
     Dates: start: 20130118
  3. MICARDIS [Suspect]
     Indication: HYPERTENSION
     Route: 048
     Dates: start: 2012, end: 20130117
  4. ANCORON [Suspect]
     Indication: EXTRASYSTOLES
     Route: 048
     Dates: start: 2011, end: 2012
  5. ANCORON [Suspect]
     Indication: ARRHYTHMIA
     Route: 048
     Dates: start: 2011, end: 2012

REACTIONS (7)
  - Anaemia [Recovered/Resolved]
  - Road traffic accident [Recovered/Resolved]
  - Drug ineffective [Unknown]
  - Hypertension [Recovered/Resolved]
  - Swelling [Recovering/Resolving]
  - Dyspnoea [Recovered/Resolved]
  - Blood pressure inadequately controlled [Recovered/Resolved]
